FAERS Safety Report 5671749-8 (Version None)
Quarter: 2008Q1

REPORT INFORMATION
  Report Type: 
  Country: None (occurrence: None)
  Receive Date: 20080314
  Receipt Date: 20080306
  Transmission Date: 20080703
  Serious: Yes (Death, Other)
  Sender: FDA-Public Use
  Company Number: 2008US000699

PATIENT
  Age: 22 Year
  Sex: Male

DRUGS (5)
  1. PROGRAF [Suspect]
     Indication: LIVER TRANSPLANT
  2. PREDNISOLONE [Concomitant]
  3. PIPERACILLIN [Concomitant]
  4. TOBRAMYCIN [Concomitant]
  5. VANCOMYCIN HYDROCHLORIDE [Concomitant]

REACTIONS (4)
  - HAEMOPTYSIS [None]
  - LYMPHOPROLIFERATIVE DISORDER [None]
  - PULMONARY EMBOLISM [None]
  - TRANSPLANT REJECTION [None]
